FAERS Safety Report 7462429-7 (Version None)
Quarter: 2011Q2

REPORT INFORMATION
  Report Type: 
  Country: None (occurrence: None)
  Receive Date: 20110506
  Receipt Date: 20110503
  Transmission Date: 20111010
  Serious: Yes (Other)
  Sender: FDA-Public Use
  Company Number: US-BRISTOL-MYERS SQUIBB COMPANY-15714447

PATIENT
  Age: 74 Year
  Sex: Female

DRUGS (3)
  1. LANTUS [Suspect]
     Indication: DIABETES MELLITUS
     Dosage: 1DF=45UNITS,23UNITS 2 YEARS AGO
     Route: 058
     Dates: start: 20090101
  2. METFORMIN HCL [Suspect]
     Indication: DIABETES MELLITUS
     Dosage: 1DF=100 INTERNATIONAL UNIT/MILLILITRE
     Route: 051
     Dates: start: 20090101
  3. NOVOLOG [Suspect]

REACTIONS (1)
  - RENAL IMPAIRMENT [None]
